FAERS Safety Report 15186619 (Version 1)
Quarter: 2018Q3

REPORT INFORMATION
  Report Type: Report from Study
  Country: US (occurrence: US)
  Receive Date: 20180723
  Receipt Date: 20180723
  Transmission Date: 20181010
  Serious: No
  Sender: FDA-Public Use
  Company Number: US-EXELIXIS-CABO-18011938

PATIENT
  Sex: Male

DRUGS (14)
  1. MORPHINE SULFATE. [Concomitant]
     Active Substance: MORPHINE SULFATE
  2. CARBOPLATIN. [Concomitant]
     Active Substance: CARBOPLATIN
  3. POTASSIUM [Concomitant]
     Active Substance: POTASSIUM
  4. ECHINACEA + VITAMINA C VITATECH [Concomitant]
  5. CALCIUM CARBONATE. [Concomitant]
     Active Substance: CALCIUM CARBONATE
  6. CABOMETYX [Suspect]
     Active Substance: CABOZANTINIB S-MALATE
     Indication: PROSTATE CANCER
     Dosage: 60 MG, QD
     Route: 048
     Dates: start: 20161224
  7. ASPIRIN. [Concomitant]
     Active Substance: ASPIRIN
  8. CABOMETYX [Suspect]
     Active Substance: CABOZANTINIB S-MALATE
     Dosage: 40 MG, QD
     Route: 048
     Dates: start: 20171209
  9. LUPRON DEPOT [Concomitant]
     Active Substance: LEUPROLIDE ACETATE
  10. PREDNISONE. [Concomitant]
     Active Substance: PREDNISONE
  11. ZOFRAN [Concomitant]
     Active Substance: ONDANSETRON HYDROCHLORIDE
  12. VITAMIN D [Concomitant]
     Active Substance: CHOLECALCIFEROL
  13. BENICAR [Concomitant]
     Active Substance: OLMESARTAN MEDOXOMIL
  14. NORCO [Concomitant]
     Active Substance: ACETAMINOPHEN\HYDROCODONE BITARTRATE

REACTIONS (3)
  - Off label use [Unknown]
  - Drug ineffective [Unknown]
  - Prostatic specific antigen increased [Unknown]
